FAERS Safety Report 7269453-8 (Version None)
Quarter: 2011Q1

REPORT INFORMATION
  Report Type: 
  Country: None (occurrence: None)
  Receive Date: 20110124
  Receipt Date: 20100113
  Transmission Date: 20110831
  Serious: Yes (Death, Hospitalization)
  Sender: FDA-Public Use
  Company Number: 2010AC000067

PATIENT
  Age: 67 Year
  Sex: Male

DRUGS (11)
  1. DIGOXIN [Suspect]
     Dosage: PO
     Route: 048
     Dates: start: 20040410
  2. FOLIC ACID [Concomitant]
  3. COREG [Concomitant]
  4. NEURONTIN [Concomitant]
  5. VITAMIN B COMPLEX CAP [Concomitant]
  6. ACTOS [Concomitant]
  7. PHOSLO [Concomitant]
  8. NEPHROVITE [Concomitant]
  9. KEFLEX [Concomitant]
  10. PEPCID [Concomitant]
  11. VOLTAREN [Concomitant]

REACTIONS (12)
  - ECONOMIC PROBLEM [None]
  - PROCEDURAL COMPLICATION [None]
  - PULSE ABSENT [None]
  - LOCALISED INFECTION [None]
  - LIMB INJURY [None]
  - INJURY [None]
  - BRADYCARDIA [None]
  - SPEECH DISORDER [None]
  - PERIPHERAL REVASCULARISATION [None]
  - CONFUSIONAL STATE [None]
  - APNOEA [None]
  - UNRESPONSIVE TO STIMULI [None]
